FAERS Safety Report 4675337-1 (Version None)
Quarter: 2005Q2

REPORT INFORMATION
  Report Type: 
  Country: None (occurrence: None)
  Receive Date: 20050527
  Receipt Date: 20041103
  Transmission Date: 20051028
  Serious: Yes (Other)
  Sender: FDA-Public Use
  Company Number: US-BRISTOL-MYERS SQUIBB COMPANY-12754370

PATIENT
  Age: 55 Year
  Sex: Female
  Weight: 57 kg

DRUGS (5)
  1. ABILIFY [Suspect]
     Indication: DEPRESSION
     Dosage: 30 MG/DAY AROUND 2002, THEN STOPPED.  RESTARTED 31-OCT-2004, 1/4 OF 5 MG, ALSO REPORTED AS 5 MG/DAY.
     Route: 048
     Dates: start: 20020101
  2. ABILIFY [Suspect]
     Indication: BIPOLAR DISORDER
     Dosage: 30 MG/DAY AROUND 2002, THEN STOPPED.  RESTARTED 31-OCT-2004, 1/4 OF 5 MG, ALSO REPORTED AS 5 MG/DAY.
     Route: 048
     Dates: start: 20020101
  3. ABILIFY [Suspect]
     Indication: POST-TRAUMATIC STRESS DISORDER
     Dosage: 30 MG/DAY AROUND 2002, THEN STOPPED.  RESTARTED 31-OCT-2004, 1/4 OF 5 MG, ALSO REPORTED AS 5 MG/DAY.
     Route: 048
     Dates: start: 20020101
  4. TEGRETOL [Concomitant]
  5. LORAZEPAM [Concomitant]

REACTIONS (5)
  - DIZZINESS [None]
  - DYSPNOEA [None]
  - FOOD CRAVING [None]
  - HEPATITIS [None]
  - HUNGER [None]
